FAERS Safety Report 13273058 (Version 3)
Quarter: 2017Q3

REPORT INFORMATION
  Report Type: Spontaneous
  Country: GB (occurrence: GB)
  Receive Date: 20170227
  Receipt Date: 20170801
  Transmission Date: 20171127
  Serious: Yes (Life-Threatening)
  Sender: FDA-Public Use
  Company Number: GB-PFIZER INC-2017078463

PATIENT
  Age: 16 Year
  Sex: Female

DRUGS (3)
  1. SERTRALINE HCL [Suspect]
     Active Substance: SERTRALINE HYDROCHLORIDE
     Indication: PANIC DISORDER
     Dosage: 25 MG, UNK
     Dates: start: 201511
  2. PARACETAMOL [Suspect]
     Active Substance: ACETAMINOPHEN
     Dosage: 20 DF, UNK
     Dates: start: 20160117, end: 20160117
  3. ARIPIPRAZOLE. [Concomitant]
     Active Substance: ARIPIPRAZOLE
     Indication: DEPRESSION
     Dosage: 2.5 MG, UNK
     Dates: start: 201511

REACTIONS (8)
  - Intentional overdose [Recovered/Resolved]
  - Flat affect [Unknown]
  - Mood swings [Unknown]
  - Malaise [Unknown]
  - Product use in unapproved indication [Unknown]
  - Agitation [Unknown]
  - Suicide attempt [Recovered/Resolved]
  - Abnormal behaviour [Unknown]

NARRATIVE: CASE EVENT DATE: 201511
